FAERS Safety Report 16571572 (Version 1)
Quarter: 2019Q3

REPORT INFORMATION
  Report Type: Spontaneous
  Country: AU (occurrence: AU)
  Receive Date: 20190715
  Receipt Date: 20190715
  Transmission Date: 20191004
  Serious: Yes (Other)
  Sender: FDA-Public Use
  Company Number: AU-PFIZER INC-2019294877

PATIENT
  Sex: Male

DRUGS (1)
  1. NORVASC [Suspect]
     Active Substance: AMLODIPINE BESYLATE
     Dosage: 2.5 MG (HALF A TABLET FROM THE 5MG)

REACTIONS (6)
  - Dizziness [Unknown]
  - Contusion [Unknown]
  - Aortic valve stenosis [Unknown]
  - Flushing [Unknown]
  - Blood pressure increased [Unknown]
  - Pruritus [Unknown]
